FAERS Safety Report 4510935-7 (Version None)
Quarter: 2004Q4

REPORT INFORMATION
  Report Type: 
  Country: None (occurrence: None)
  Receive Date: 20041025
  Receipt Date: 20040405
  Transmission Date: 20050328
  Serious: Yes (Hospitalization)
  Sender: FDA-Public Use
  Company Number: NSADSS2002040191

PATIENT
  Age: 63 Year
  Sex: Male
  Weight: 78.4723 kg

DRUGS (4)
  1. REMICADE [Suspect]
     Indication: CROHN'S DISEASE
     Dates: start: 20021007
  2. REMICADE [Suspect]
     Indication: CROHN'S DISEASE
     Dates: start: 20021121
  3. REMICADE [Suspect]
     Indication: CROHN'S DISEASE
     Dates: start: 20030102
  4. ASACOL [Concomitant]

REACTIONS (1)
  - CROHN'S DISEASE [None]
